FAERS Safety Report 8614719-X (Version None)
Quarter: 2012Q3

REPORT INFORMATION
  Report Type: 
  Country: None (occurrence: None)
  Receive Date: 20120810
  Receipt Date: 20120730
  Transmission Date: 20120928
  Serious: Yes (Disabling, Other)
  Sender: FDA-Public Use
  Company Number: ACO_30200_2012

PATIENT
  Age: 66 Year
  Sex: Male
  Weight: 82.1 kg

DRUGS (4)
  1. NORVASC [Concomitant]
  2. LIPITOR [Concomitant]
  3. AMPYRA [Suspect]
     Indication: MULTIPLE SCLEROSIS
     Dosage: 10 MG, BID, ORAL
     Route: 048
     Dates: start: 20120308, end: 20120416
  4. COPAXONE [Concomitant]

REACTIONS (6)
  - MUSCULAR WEAKNESS [None]
  - ASTHENIA [None]
  - NECK PAIN [None]
  - PARAESTHESIA [None]
  - MULTIPLE SCLEROSIS RELAPSE [None]
  - CONFUSIONAL STATE [None]
